FAERS Safety Report 10079795 (Version 2)
Quarter: 2014Q2

REPORT INFORMATION
  Report Type: Spontaneous
  Country: FR (occurrence: FR)
  Receive Date: 20140415
  Receipt Date: 20140428
  Transmission Date: 20141212
  Serious: Yes (Death, Life-Threatening, Hospitalization)
  Sender: FDA-Public Use
  Company Number: FR-JNJFOC-20140408418

PATIENT
  Age: 79 Year
  Sex: Female

DRUGS (10)
  1. XARELTO [Suspect]
     Indication: PRODUCT USED FOR UNKNOWN INDICATION
     Route: 048
     Dates: start: 201312
  2. LYRICA [Concomitant]
     Route: 048
  3. TRIATEC [Concomitant]
     Route: 048
  4. NOVORAPID [Concomitant]
     Route: 058
  5. INEXIUM [Concomitant]
     Route: 048
  6. LASILIX [Concomitant]
     Route: 048
  7. SOTALOL HYDROCHLORIDE [Concomitant]
     Route: 048
  8. INSULIN INSULTARD [Concomitant]
     Route: 058
  9. LEVOTHYROX [Concomitant]
     Indication: HYPOTHYROIDISM
     Route: 048
  10. ZOCOR [Concomitant]
     Route: 065

REACTIONS (3)
  - Cerebral haematoma [Fatal]
  - Intraventricular haemorrhage [Fatal]
  - Hypoglycaemic coma [Recovered/Resolved]
